FAERS Safety Report 17010575 (Version 2)
Quarter: 2019Q4

REPORT INFORMATION
  Report Type: Spontaneous
  Country: US (occurrence: US)
  Receive Date: 20191108
  Receipt Date: 20191119
  Transmission Date: 20200122
  Serious: Yes (Other)
  Sender: FDA-Public Use
  Company Number: US-ASTRAZENECA-2019SF56787

PATIENT
  Age: 43 Year
  Sex: Female
  Weight: 104.3 kg

DRUGS (12)
  1. PRILOSEC [Suspect]
     Active Substance: OMEPRAZOLE MAGNESIUM
     Indication: GASTROOESOPHAGEAL REFLUX DISEASE
     Dosage: GENERIC-20MG
     Route: 065
     Dates: start: 20050427
  2. METOPROLOL. [Concomitant]
     Active Substance: METOPROLOL
     Indication: BLOOD PRESSURE ABNORMAL
  3. PRILOSEC [Suspect]
     Active Substance: OMEPRAZOLE MAGNESIUM
     Indication: GASTROOESOPHAGEAL REFLUX DISEASE
     Route: 048
     Dates: start: 2000, end: 2008
  4. SIMVASTATIN. [Concomitant]
     Active Substance: SIMVASTATIN
     Indication: BLOOD CHOLESTEROL ABNORMAL
  5. ACETAMINOPHEN. [Concomitant]
     Active Substance: ACETAMINOPHEN
     Indication: PAIN
  6. TUMS [Concomitant]
     Active Substance: CALCIUM CARBONATE
  7. PRILOSEC [Suspect]
     Active Substance: OMEPRAZOLE MAGNESIUM
     Indication: GASTROOESOPHAGEAL REFLUX DISEASE
     Dosage: GENERIC
     Route: 065
     Dates: start: 2001, end: 2016
  8. PRILOSEC [Suspect]
     Active Substance: OMEPRAZOLE MAGNESIUM
     Indication: GASTROOESOPHAGEAL REFLUX DISEASE
     Route: 048
     Dates: start: 20010907
  9. ENBREL [Concomitant]
     Active Substance: ETANERCEPT
     Indication: ARTHRITIS
  10. PRILOSEC [Suspect]
     Active Substance: OMEPRAZOLE MAGNESIUM
     Indication: GASTROOESOPHAGEAL REFLUX DISEASE
     Dosage: GENERIC-20MG
     Route: 065
     Dates: start: 2006, end: 2016
  11. AMLODIPIN [Concomitant]
     Active Substance: AMLODIPINE BESYLATE
     Indication: BLOOD PRESSURE ABNORMAL
  12. LOSARTAN. [Concomitant]
     Active Substance: LOSARTAN
     Indication: BLOOD PRESSURE ABNORMAL

REACTIONS (4)
  - Chronic kidney disease [Unknown]
  - Acute kidney injury [Unknown]
  - Renal failure [Not Recovered/Not Resolved]
  - Nephrogenic anaemia [Unknown]

NARRATIVE: CASE EVENT DATE: 2009
